FAERS Safety Report 4624867-7 (Version None)
Quarter: 2005Q2

REPORT INFORMATION
  Report Type: 
  Country: None (occurrence: None)
  Receive Date: 20050325
  Receipt Date: 20050106
  Transmission Date: 20051028
  Serious: No
  Sender: FDA-Public Use
  Company Number: USA050187731

PATIENT
  Age: 71 Year
  Sex: Female

DRUGS (2)
  1. FORTEO [Suspect]
     Indication: OSTEOPOROSIS
     Dosage: 20 UG
     Dates: start: 20040501
  2. CALCIUM GLUCONATE [Concomitant]

REACTIONS (11)
  - BACK PAIN [None]
  - DYSPNOEA [None]
  - GAIT DISTURBANCE [None]
  - HEARING IMPAIRED [None]
  - MACULAR DEGENERATION [None]
  - MEMORY IMPAIRMENT [None]
  - MULTIPLE ALLERGIES [None]
  - MUSCLE INJURY [None]
  - NASAL SINUS DRAINAGE [None]
  - SPINAL FRACTURE [None]
  - VISUAL ACUITY REDUCED [None]
